FAERS Safety Report 8873236 (Version 1)
Quarter: 2012Q4

REPORT INFORMATION
  Report Type: 
  Country: US (occurrence: US)
  Receive Date: 20121023
  Receipt Date: 20121023
  Transmission Date: 20130627
  Serious: No
  Sender: FDA-Public Use
  Company Number: US-ASTELLAS-2012US005550

PATIENT
  Age: 61 Year
  Sex: Female

DRUGS (6)
  1. PROGRAF [Suspect]
     Indication: LIVER TRANSPLANT
     Dosage: 3 mg, UID/QD
     Route: 048
     Dates: start: 20110926, end: 20120627
  2. MYFORTIC [Concomitant]
     Indication: IMMUNOSUPPRESSANT DRUG THERAPY
     Dosage: 360 mg, bid
     Route: 048
     Dates: start: 20120120
  3. AMLODIPINE BESYLATE [Concomitant]
     Indication: HYPERTENSION
     Dosage: 5 mg, UID/QD
     Route: 048
     Dates: start: 20111107
  4. OMEPRAZOLE [Concomitant]
     Indication: GASTROINTESTINAL DISORDER
     Dosage: 20 mg, UID/QD
     Route: 048
     Dates: start: 20111121
  5. MAGNESIUM OXIDE [Concomitant]
     Indication: METABOLIC DISORDER
     Dosage: 400 mg, tid
     Route: 048
     Dates: start: 20111205
  6. AMBIEN [Concomitant]
     Indication: PRODUCT USED FOR UNKNOWN INDICATION
     Dosage: 5 mg, UID/QD
     Route: 048

REACTIONS (1)
  - Neuropathy peripheral [Recovering/Resolving]
